FAERS Safety Report 13423442 (Version 5)
Quarter: 2017Q4

REPORT INFORMATION
  Report Type: Report from Study
  Country: US (occurrence: US)
  Receive Date: 20170410
  Receipt Date: 20171013
  Transmission Date: 20180320
  Serious: Yes (Death, Hospitalization)
  Sender: FDA-Public Use
  Company Number: US-JNJFOC-20170408247

PATIENT
  Age: 62 Year
  Sex: Male

DRUGS (2)
  1. IMBRUVICA [Suspect]
     Active Substance: IBRUTINIB
     Indication: CHRONIC LYMPHOCYTIC LEUKAEMIA
     Route: 048
     Dates: start: 20141001
  2. IMBRUVICA [Suspect]
     Active Substance: IBRUTINIB
     Indication: CHRONIC LYMPHOCYTIC LEUKAEMIA
     Route: 048
     Dates: start: 20140918

REACTIONS (7)
  - Urinary tract infection [Unknown]
  - Bacterial sepsis [Unknown]
  - Abnormal behaviour [Unknown]
  - Respiratory tract congestion [Unknown]
  - Diabetes mellitus inadequate control [Unknown]
  - Diabetic complication [Fatal]
  - Renal failure [Unknown]

NARRATIVE: CASE EVENT DATE: 20170402
